FAERS Safety Report 21722440 (Version 1)
Quarter: 2022Q4

REPORT INFORMATION
  Report Type: Spontaneous
  Country: US (occurrence: None)
  Receive Date: 20221212
  Receipt Date: 20221212
  Transmission Date: 20230112
  Serious: Yes (Other)
  Sender: FDA-Public Use
  Company Number: None

PATIENT
  Age: 88 Year
  Sex: Female

DRUGS (1)
  1. PRALUENT [Suspect]
     Active Substance: ALIROCUMAB
     Indication: Hyperlipidaemia
     Dosage: OTHER QUANTITY : 75/1 MG/ML;?FREQUENCY : EVERY OTHER WEEK;?
     Route: 058
     Dates: start: 20210804, end: 20220921

REACTIONS (1)
  - Wheezing [None]

NARRATIVE: CASE EVENT DATE: 20220103
